FAERS Safety Report 9521487 (Version 1)
Quarter: 2013Q1

REPORT INFORMATION
  Report Type: Spontaneous
  Country: US (occurrence: None)
  Receive Date: 20130305
  Receipt Date: 20130305
  Transmission Date: 20140127
  Serious: Yes (Hospitalization)
  Sender: FDA-Public Use
  Company Number: 163-21880-12011599

PATIENT
  Age: 79 Year
  Sex: Female

DRUGS (17)
  1. REVLIMID [Suspect]
     Indication: MYELODYSPLASTIC SYNDROME
     Dosage: 5 MG, MON., WED., FRI., PO
     Route: 048
     Dates: start: 20061005
  2. ASPIRIN (ACETYLSALICYLIC ACID) [Concomitant]
  3. CALCET (CALCET) [Concomitant]
  4. CENTRUM (CENTRUM) [Concomitant]
  5. COUMADIN (WARFARIN SODIUM) [Concomitant]
  6. K-DUR (POTASSIUM CHLORIDE) [Concomitant]
  7. LASIX (FUROSEMIDE) [Concomitant]
  8. LEVOTHYROXIN (LEVOTHYROXINE SODIUM) [Concomitant]
  9. LIPITOR (ATORVASTATIN) [Concomitant]
  10. NEXIUM [Concomitant]
  11. PLAVIX (CLOPIDOGREL SULFATE) [Concomitant]
  12. PROCRIT [Concomitant]
  13. SALSALATE (SALSALATE) [Concomitant]
  14. SKELAXIN (METAXALONE) [Concomitant]
  15. THEOPHYLLINE (THEOPHYLLINE) [Concomitant]
  16. TOPROL (METOPROLOL SUCCINATE) [Concomitant]
  17. ZETIA (EZETIMIBE) [Concomitant]

REACTIONS (1)
  - Pneumonia [None]
